FAERS Safety Report 10240435 (Version 1)
Quarter: 2014Q2

REPORT INFORMATION
  Report Type: Spontaneous
  Country: US (occurrence: US)
  Receive Date: 20140617
  Receipt Date: 20140617
  Transmission Date: 20141212
  Serious: No
  Sender: FDA-Public Use
  Company Number: US-BIOGENIDEC-2014BI055381

PATIENT
  Age: 52 Year
  Sex: Female

DRUGS (7)
  1. TECFIDERA [Suspect]
     Indication: MULTIPLE SCLEROSIS
     Route: 048
     Dates: start: 20140324
  2. VITAMIN D [Concomitant]
  3. NEXIUM [Concomitant]
  4. LISINOPRIL [Concomitant]
  5. HYDROCHLOROTHIAZIDE [Concomitant]
  6. GABAPENTIN [Concomitant]
  7. FLUOXETINE HCL [Concomitant]

REACTIONS (1)
  - Dysgeusia [Unknown]
